FAERS Safety Report 21019044 (Version 2)
Quarter: 2022Q2

REPORT INFORMATION
  Report Type: Spontaneous
  Country: IL (occurrence: IL)
  Receive Date: 20220628
  Receipt Date: 20220630
  Transmission Date: 20220721
  Serious: Yes (Hospitalization)
  Sender: FDA-Public Use
  Company Number: IL-009507513-2206ISR006633

PATIENT
  Sex: Male

DRUGS (3)
  1. METFORMIN HYDROCHLORIDE\SITAGLIPTIN PHOSPHATE [Suspect]
     Active Substance: METFORMIN HYDROCHLORIDE\SITAGLIPTIN PHOSPHATE
     Dosage: UNK
     Route: 048
     Dates: start: 2020
  2. JANUVIA [Suspect]
     Active Substance: SITAGLIPTIN PHOSPHATE
     Dosage: UNK
     Route: 048
     Dates: start: 2022
  3. METFORMIN [Concomitant]
     Active Substance: METFORMIN HYDROCHLORIDE
     Dosage: UNK
     Dates: start: 2022

REACTIONS (6)
  - Cardiac disorder [Not Recovered/Not Resolved]
  - Vomiting [Unknown]
  - Dysphagia [Unknown]
  - Dysphagia [Unknown]
  - Wrong technique in product usage process [Unknown]
  - Product use issue [Unknown]

NARRATIVE: CASE EVENT DATE: 20220101
